FAERS Safety Report 20540049 (Version 1)
Quarter: 2022Q1

REPORT INFORMATION
  Report Type: Spontaneous
  Country: FR (occurrence: FR)
  Receive Date: 20220302
  Receipt Date: 20220302
  Transmission Date: 20220424
  Serious: Yes (Other)
  Sender: FDA-Public Use
  Company Number: None

PATIENT
  Age: 6 Year
  Sex: Male
  Weight: 21 kg

DRUGS (1)
  1. HALDOL [Suspect]
     Active Substance: HALOPERIDOL
     Indication: Hallucination, visual
     Dosage: 1 MG 3 FOIS PAR JOUR
     Route: 048
     Dates: start: 20211004, end: 20211006

REACTIONS (7)
  - Depressed level of consciousness [Recovered/Resolved]
  - Dystonia [Recovered/Resolved]
  - Decreased eye contact [Recovered/Resolved]
  - Dyskinesia [Recovered/Resolved]
  - Echolalia [Recovered/Resolved]
  - Off label use [Unknown]
  - Product use in unapproved indication [Unknown]

NARRATIVE: CASE EVENT DATE: 20211004
